FAERS Safety Report 20900737 (Version 1)
Quarter: 2022Q2

REPORT INFORMATION
  Report Type: Spontaneous
  Country: US (occurrence: None)
  Receive Date: 20220531
  Receipt Date: 20220531
  Transmission Date: 20220721
  Serious: No
  Sender: FDA-Public Use
  Company Number: None

PATIENT
  Sex: Female

DRUGS (1)
  1. XELJANZ [Suspect]
     Active Substance: TOFACITINIB CITRATE
     Indication: Rheumatoid arthritis
     Dosage: 5MG TWICE DAILY ORAL
     Route: 048
     Dates: start: 20210813

REACTIONS (6)
  - Pain in extremity [None]
  - Peripheral swelling [None]
  - Plantar fasciitis [None]
  - Neuropathy peripheral [None]
  - Osteitis [None]
  - Rheumatoid arthritis [None]
